FAERS Safety Report 8757599 (Version 2)
Quarter: 2012Q4

REPORT INFORMATION
  Report Type: 
  Country: US (occurrence: US)
  Receive Date: 20120828
  Receipt Date: 20120828
  Transmission Date: 20130627
  Serious: No
  Sender: FDA-Public Use
  Company Number: US-MYLANLABS-2011S1025998

PATIENT
  Age: 88 Year
  Sex: Male
  Weight: 72.58 kg

DRUGS (6)
  1. TEMAZEPAM CAPSULES [Suspect]
     Indication: INSOMNIA
     Dosage: PRN
     Route: 048
     Dates: start: 201108, end: 2011
  2. TEMAZEPAM CAPSULES [Suspect]
     Indication: INSOMNIA
     Dosage: PRN
     Route: 048
     Dates: start: 2011
  3. FLUTICASONE [Concomitant]
  4. ADVIL [Concomitant]
  5. TYLENOL [Concomitant]
  6. ASPERCREME [Concomitant]

REACTIONS (4)
  - Oedema peripheral [Not Recovered/Not Resolved]
  - Paraesthesia [Recovering/Resolving]
  - Hypoaesthesia [Recovering/Resolving]
  - Pain in extremity [Recovering/Resolving]
